FAERS Safety Report 25350656 (Version 2)
Quarter: 2025Q4

REPORT INFORMATION
  Report Type: Report from Study
  Country: US (occurrence: US)
  Receive Date: 20250523
  Receipt Date: 20251024
  Transmission Date: 20260117
  Serious: No
  Sender: MERCK SHARP & DOHME LLC
  Company Number: US-009507513-2010557

PATIENT
  Sex: Female
  Weight: 125.19 kg

DRUGS (22)
  1. WINREVAIR [Suspect]
     Active Substance: SOTATERCEPT-CSRK
     Indication: Pulmonary arterial hypertension
     Dosage: DOSE DESCRIPTION : UNK
     Route: 058
     Dates: start: 20250509
  2. WINREVAIR [Suspect]
     Active Substance: SOTATERCEPT-CSRK
     Route: 065
  3. WINREVAIR [Suspect]
     Active Substance: SOTATERCEPT-CSRK
  4. WINREVAIR [Suspect]
     Active Substance: SOTATERCEPT-CSRK
  5. ESCITALOPRAM OXALATE [Concomitant]
     Active Substance: ESCITALOPRAM OXALATE
  6. ATORVASTATIN CALCIUM [Concomitant]
     Active Substance: ATORVASTATIN CALCIUM
  7. FUROSEMIDE [Concomitant]
     Active Substance: FUROSEMIDE
  8. MELOXICAM [Concomitant]
     Active Substance: MELOXICAM
  9. FLUOXETINE HYDROCHLORIDE [Concomitant]
     Active Substance: FLUOXETINE HYDROCHLORIDE
  10. XARELTO [Concomitant]
     Active Substance: RIVAROXABAN
  11. LEVOTHYROXINE [Concomitant]
     Active Substance: LEVOTHYROXINE
  12. TYLENOL [Concomitant]
     Active Substance: ACETAMINOPHEN
  13. FOLIC ACID [Concomitant]
     Active Substance: FOLIC ACID
  14. SPIRONOLACTONE [Concomitant]
     Active Substance: SPIRONOLACTONE
  15. TADALAFIL [Concomitant]
     Active Substance: TADALAFIL
  16. TORSEMIDE [Concomitant]
     Active Substance: TORSEMIDE
  17. BUPRENORPHINE HYDROCHLORIDE [Concomitant]
     Active Substance: BUPRENORPHINE HYDROCHLORIDE
  18. ROPINIROLE HYDROCHLORIDE [Concomitant]
     Active Substance: ROPINIROLE HYDROCHLORIDE
  19. OXYGEN [Concomitant]
     Active Substance: OXYGEN
  20. IBUPROFEN [Concomitant]
     Active Substance: IBUPROFEN
  21. REMODULIN [Suspect]
     Active Substance: TREPROSTINIL
     Indication: Pulmonary arterial hypertension
     Dosage: 10 MG/ML; SELF-FILL WITH 2.7 ML PER CASSETTE AT THE PUMP RATE OF 31 MCL PER HOUR
     Route: 058
     Dates: start: 20230729
  22. UPTRAVI [Suspect]
     Active Substance: SELEXIPAG
     Route: 065

REACTIONS (5)
  - Drug intolerance [Unknown]
  - Energy increased [Recovered/Resolved]
  - Diarrhoea [Unknown]
  - Pruritus [Recovered/Resolved]
  - Epistaxis [Unknown]

NARRATIVE: CASE EVENT DATE: 20250101
